FAERS Safety Report 13466859 (Version 1)
Quarter: 2017Q2

REPORT INFORMATION
  Report Type: Spontaneous
  Country: PH (occurrence: PH)
  Receive Date: 20170421
  Receipt Date: 20170421
  Transmission Date: 20170830
  Serious: Yes (Hospitalization, Other)
  Sender: FDA-Public Use
  Company Number: PH-GLAXOSMITHKLINE-PH2017GSK055395

PATIENT
  Age: 85 Year
  Sex: Female

DRUGS (1)
  1. ANORO ELLIPTA [Suspect]
     Active Substance: UMECLIDINIUM BROMIDE\VILANTEROL TRIFENATATE
     Indication: PRODUCT USED FOR UNKNOWN INDICATION
     Route: 055

REACTIONS (2)
  - Cardiac failure congestive [Recovering/Resolving]
  - Tachycardia [Recovering/Resolving]
